FAERS Safety Report 8545023-6 (Version None)
Quarter: 2012Q3

REPORT INFORMATION
  Report Type: 
  Country: None (occurrence: None)
  Receive Date: 20120727
  Receipt Date: 20120720
  Transmission Date: 20120928
  Serious: Yes (Hospitalization)
  Sender: FDA-Public Use
  Company Number: US-JNJFOC-20120712170

PATIENT
  Sex: Female
  Weight: 76.66 kg

DRUGS (1)
  1. REMICADE [Suspect]
     Indication: RHEUMATOID ARTHRITIS
     Route: 042
     Dates: start: 20120619

REACTIONS (4)
  - PAINFUL RESPIRATION [None]
  - DYSPNOEA [None]
  - CHEST DISCOMFORT [None]
  - PULMONARY OEDEMA [None]
